FAERS Safety Report 7653201-3 (Version None)
Quarter: 2011Q3

REPORT INFORMATION
  Report Type: 
  Country: None (occurrence: None)
  Receive Date: 20110802
  Receipt Date: 20110802
  Transmission Date: 20111222
  Serious: No
  Sender: FDA-Public Use
  Company Number: None

PATIENT
  Age: 54 Year
  Sex: Female

DRUGS (1)
  1. DICLOFENAC SODIUM [Suspect]
     Indication: ARTHRITIS
     Dosage: 75MG BID P.O.
     Route: 048
     Dates: start: 20110628, end: 20110723

REACTIONS (2)
  - INADEQUATE ANALGESIA [None]
  - PRODUCT SUBSTITUTION ISSUE [None]
